FAERS Safety Report 4602103-5 (Version None)
Quarter: 2005Q1

REPORT INFORMATION
  Report Type: 
  Country: None (occurrence: None)
  Receive Date: 20050131
  Receipt Date: 20041229
  Transmission Date: 20050727
  Serious: No
  Sender: FDA-Public Use
  Company Number: 200417694US

PATIENT
  Age: 50 Year
  Sex: Female
  Weight: 74.5 kg

DRUGS (4)
  1. KETEK [Suspect]
     Indication: ACUTE SINUSITIS
     Dosage: 800 MG QD PO
     Route: 048
     Dates: start: 20040928
  2. LIPITOR [Concomitant]
  3. ASPIRIN [Concomitant]
  4. ALLEGRA [Concomitant]
     Indication: ACUTE SINUSITIS
     Dosage: 800 MG QD PO
     Route: 048
     Dates: start: 20040928

REACTIONS (1)
  - VISION BLURRED [None]
